FAERS Safety Report 8608168-8 (Version None)
Quarter: 2012Q3

REPORT INFORMATION
  Report Type: 
  Country: None (occurrence: None)
  Receive Date: 20120821
  Receipt Date: 20120816
  Transmission Date: 20120928
  Serious: Yes (Life-Threatening, Hospitalization)
  Sender: FDA-Public Use
  Company Number: US-ASTRAZENECA-2012SE59880

PATIENT
  Age: 37 Year
  Sex: Male

DRUGS (2)
  1. UNSPECIFIED MEDICATION [Suspect]
     Route: 065
  2. NEXIUM [Suspect]
     Route: 048

REACTIONS (3)
  - APPARENT DEATH [None]
  - ADVERSE DRUG REACTION [None]
  - SCHIZOPHRENIA [None]
